FAERS Safety Report 23918140 (Version 1)
Quarter: 2024Q2

REPORT INFORMATION
  Report Type: Report from Study
  Country: BR (occurrence: BR)
  Receive Date: 20240530
  Receipt Date: 20240530
  Transmission Date: 20240716
  Serious: Yes (Hospitalization, Other)
  Sender: FDA-Public Use
  Company Number: BR-JNJFOC-20240572256

PATIENT
  Age: 29 Year
  Sex: Female
  Weight: 85 kg

DRUGS (3)
  1. GOLIMUMAB [Suspect]
     Active Substance: GOLIMUMAB
     Indication: Ankylosing spondylitis
     Dosage: LAST DRUG APPLICATION: 13-MAY-2024
     Route: 058
     Dates: start: 20211112
  2. GOLIMUMAB [Suspect]
     Active Substance: GOLIMUMAB
  3. GOLIMUMAB [Suspect]
     Active Substance: GOLIMUMAB

REACTIONS (4)
  - Hypertension [Unknown]
  - Cough [Unknown]
  - Pyrexia [Unknown]
  - Rash [Unknown]

NARRATIVE: CASE EVENT DATE: 20240514
